FAERS Safety Report 20225434 (Version 1)
Quarter: 2021Q4

REPORT INFORMATION
  Report Type: Spontaneous
  Country: US (occurrence: US)
  Receive Date: 20211224
  Receipt Date: 20211224
  Transmission Date: 20220303
  Serious: No
  Sender: FDA-Public Use
  Company Number: US-TOLMAR, INC.-21US030811

PATIENT
  Age: 47 Year
  Sex: Male

DRUGS (1)
  1. ELIGARD [Suspect]
     Active Substance: LEUPROLIDE ACETATE
     Indication: Product used for unknown indication
     Dosage: 22.5 MILLIGRAM

REACTIONS (2)
  - Injury associated with device [Recovered/Resolved]
  - Occupational exposure to product [Recovered/Resolved]

NARRATIVE: CASE EVENT DATE: 20211001
